FAERS Safety Report 5330338-5 (Version None)
Quarter: 2007Q2

REPORT INFORMATION
  Report Type: 
  Country: None (occurrence: None)
  Receive Date: 20070521
  Receipt Date: 20070511
  Transmission Date: 20071010
  Serious: Yes (Hospitalization)
  Sender: FDA-Public Use
  Company Number: BR-PFIZER INC-2006093376

PATIENT
  Sex: Male

DRUGS (4)
  1. FRAGMIN [Suspect]
     Route: 064
  2. LOSARTAN POTASSIUM AND HYDROCHLOROTHIAZIDE [Concomitant]
     Dosage: TEXT:1 DF DAILY
  3. AAS [Concomitant]
  4. ASCORBIC ACID [Concomitant]

REACTIONS (2)
  - DRUG EXPOSURE DURING PREGNANCY [None]
  - NEONATAL PNEUMONIA [None]
